FAERS Safety Report 4852056-X (Version None)
Quarter: 2005Q4

REPORT INFORMATION
  Report Type: 
  Country: None (occurrence: None)
  Receive Date: 20051213
  Receipt Date: 20001011
  Transmission Date: 20060501
  Serious: Yes (Death, Life-Threatening, Hospitalization)
  Sender: FDA-Public Use
  Company Number: AT-ROCHE-247160

PATIENT
  Age: 43 Year
  Sex: Male
  Weight: 83 kg

DRUGS (10)
  1. RIBAVIRIN [Suspect]
     Dosage: WITH FOOD.
     Route: 048
     Dates: start: 20000830, end: 20010423
  2. PEG-INTERFERON ALFA 2A (RO 25-8310) [Suspect]
     Route: 058
     Dates: start: 20000830, end: 20010419
  3. INVIRASE [Concomitant]
     Dates: start: 19970507
  4. RITONAVIR [Concomitant]
     Dates: start: 19970507, end: 20010426
  5. ABACAVIR [Concomitant]
     Dosage: DOSE LOWERED TO 600 MG .
     Dates: start: 20000215, end: 20010426
  6. VIT. K [Concomitant]
     Dosage: INCREASED TO 30 MG FROM 23 APR 2001.
     Dates: start: 19980918, end: 20010426
  7. SERTRALINE HCL [Concomitant]
     Dates: start: 20010426, end: 20010426
  8. ZOLEPIDEM [Concomitant]
     Dates: start: 20010423, end: 20010426
  9. VALACYCLOVIR HCL [Concomitant]
     Dates: start: 20010423, end: 20010426
  10. OMEPRAZOLE [Concomitant]
     Dates: start: 20010423, end: 20010426

REACTIONS (13)
  - CARDIAC FAILURE [None]
  - COMPLETED SUICIDE [None]
  - CONFUSIONAL STATE [None]
  - DEPRESSION [None]
  - DISORIENTATION [None]
  - DRUG SCREEN POSITIVE [None]
  - FEMUR FRACTURE [None]
  - GASTRITIS [None]
  - LUMBAR VERTEBRAL FRACTURE [None]
  - NEPHROLITHIASIS [None]
  - RADIUS FRACTURE [None]
  - SHOCK [None]
  - URINARY TRACT INFECTION [None]
